FAERS Safety Report 9798533 (Version 2)
Quarter: 2014Q1

REPORT INFORMATION
  Report Type: Spontaneous
  Country: IL (occurrence: IL)
  Receive Date: 20140106
  Receipt Date: 20140106
  Transmission Date: 20141002
  Serious: Yes (Hospitalization, Other)
  Sender: FDA-Public Use
  Company Number: IL-ABBVIE-13P-082-1142254-00

PATIENT
  Age: 45 Year
  Sex: Female

DRUGS (3)
  1. HUMIRA [Suspect]
     Indication: CROHN^S DISEASE
  2. HUMIRA [Suspect]
  3. IRON [Concomitant]
     Indication: PRODUCT USED FOR UNKNOWN INDICATION

REACTIONS (6)
  - Microcytic anaemia [Unknown]
  - Hypochromic anaemia [Unknown]
  - Thrombocytopenia [Unknown]
  - Herpes simplex [Recovered/Resolved]
  - High risk sexual behaviour [Unknown]
  - Rash papulosquamous [Unknown]
